FAERS Safety Report 8772423 (Version 1)
Quarter: 2012Q4

REPORT INFORMATION
  Report Type: 
  Country: US (occurrence: US)
  Receive Date: 20120905
  Receipt Date: 20120905
  Transmission Date: 20130627
  Serious: No
  Sender: FDA-Public Use
  Company Number: US-BAYER-2012-091510

PATIENT
  Sex: Female

DRUGS (1)
  1. MIRENA [Suspect]
     Indication: CONTRACEPTION
     Dosage: 20 mcg/24hr, CONT
     Route: 015
     Dates: start: 2008, end: 20111221

REACTIONS (6)
  - Blood oestrogen decreased [None]
  - Premature menopause [None]
  - Amenorrhoea [None]
  - Fatigue [None]
  - Mood altered [None]
  - Hot flush [None]
